FAERS Safety Report 20282612 (Version 1)
Quarter: 2022Q1

REPORT INFORMATION
  Report Type: Report from Study
  Country: US (occurrence: US)
  Receive Date: 20220103
  Receipt Date: 20220103
  Transmission Date: 20220423
  Serious: Yes (Other)
  Sender: FDA-Public Use
  Company Number: US-MYLANLABS-2021M1097953

PATIENT
  Age: 8 Year
  Sex: Female

DRUGS (3)
  1. CARVEDILOL [Suspect]
     Active Substance: CARVEDILOL
     Indication: Supraventricular tachycardia
     Dosage: UNK
     Route: 065
  2. SOTALOL [Suspect]
     Active Substance: SOTALOL
     Indication: Supraventricular tachycardia
     Dosage: UNK
     Route: 065
  3. DIGOXIN [Suspect]
     Active Substance: DIGOXIN
     Indication: Supraventricular tachycardia
     Dosage: UNK
     Route: 065

REACTIONS (2)
  - Drug ineffective for unapproved indication [Unknown]
  - Off label use [Unknown]
